FAERS Safety Report 6154589-5 (Version None)
Quarter: 2009Q2

REPORT INFORMATION
  Report Type: 
  Country: None (occurrence: None)
  Receive Date: 20090414
  Receipt Date: 20090407
  Transmission Date: 20091009
  Serious: Yes (Congenital Anomaly)
  Sender: FDA-Public Use
  Company Number: FR-SANOFI-SYNTHELABO-A02200900935

PATIENT
  Age: 0 Day

DRUGS (1)
  1. PLAQUENIL [Suspect]
     Indication: SJOGREN'S SYNDROME
     Route: 064

REACTIONS (2)
  - CONGENITAL CENTRAL NERVOUS SYSTEM ANOMALY [None]
  - DRUG EXPOSURE DURING PREGNANCY [None]
